FAERS Safety Report 7001196-8 (Version None)
Quarter: 2010Q3

REPORT INFORMATION
  Report Type: 
  Country: None (occurrence: None)
  Receive Date: 20100920
  Receipt Date: 20080115
  Transmission Date: 20110219
  Serious: Yes (Other)
  Sender: FDA-Public Use
  Company Number: US-ASTRAZENECA-2007UW19660

PATIENT
  Age: 45 Year
  Sex: Female
  Weight: 92.5 kg

DRUGS (24)
  1. SEROQUEL [Suspect]
     Indication: DEPRESSION
     Dosage: VARIOUS DOSES INCLUDING BUT NOT LIMITED TO 100 MG AND 300 MG
     Route: 048
     Dates: start: 20000101
  2. SEROQUEL [Suspect]
     Indication: AGITATION
     Dosage: VARIOUS DOSES INCLUDING BUT NOT LIMITED TO 100 MG AND 300 MG
     Route: 048
     Dates: start: 20000101
  3. SEROQUEL [Suspect]
     Indication: INSOMNIA
     Dosage: VARIOUS DOSES INCLUDING BUT NOT LIMITED TO 100 MG AND 300 MG
     Route: 048
     Dates: start: 20000101
  4. SEROQUEL [Suspect]
     Indication: PSYCHOTIC DISORDER
     Dosage: VARIOUS DOSES INCLUDING BUT NOT LIMITED TO 100 MG AND 300 MG
     Route: 048
     Dates: start: 20000101
  5. SEROQUEL [Suspect]
     Indication: SLEEP DISORDER
     Dosage: VARIOUS DOSES INCLUDING BUT NOT LIMITED TO 100 MG AND 300 MG
     Route: 048
     Dates: start: 20000101
  6. SEROQUEL [Suspect]
     Indication: AFFECTIVE DISORDER
     Dosage: VARIOUS DOSES INCLUDING BUT NOT LIMITED TO 100 MG AND 300 MG
     Route: 048
     Dates: start: 20000101
  7. SEROQUEL [Suspect]
     Dosage: 100 MG TO 600 MG(FLUCTUATING)
     Route: 048
     Dates: start: 20000816
  8. SEROQUEL [Suspect]
     Dosage: 100 MG TO 600 MG(FLUCTUATING)
     Route: 048
     Dates: start: 20000816
  9. SEROQUEL [Suspect]
     Dosage: 100 MG TO 600 MG(FLUCTUATING)
     Route: 048
     Dates: start: 20000816
  10. SEROQUEL [Suspect]
     Dosage: 100 MG TO 600 MG(FLUCTUATING)
     Route: 048
     Dates: start: 20000816
  11. SEROQUEL [Suspect]
     Dosage: 100 MG TO 600 MG(FLUCTUATING)
     Route: 048
     Dates: start: 20000816
  12. SEROQUEL [Suspect]
     Dosage: 100 MG TO 600 MG(FLUCTUATING)
     Route: 048
     Dates: start: 20000816
  13. HYDROXYZINE [Concomitant]
     Indication: ANXIETY
     Dosage: 25 MG TO 50 MG, TWO TIMES A DAY
     Route: 048
     Dates: start: 19970905
  14. SERZONE [Concomitant]
     Route: 048
     Dates: start: 20010220
  15. QUINAPRIL [Concomitant]
     Dates: start: 20031209
  16. EFFEXOR XR [Concomitant]
     Route: 048
     Dates: start: 20040215
  17. VERAPAMIL ER [Concomitant]
     Route: 048
     Dates: start: 20040215
  18. PROTONIX [Concomitant]
     Route: 048
     Dates: start: 20040215
  19. ALTACE [Concomitant]
     Route: 048
     Dates: start: 20040224
  20. METFORMIN [Concomitant]
     Route: 048
     Dates: start: 20050420
  21. CLONIDINE [Concomitant]
     Route: 048
     Dates: start: 19990612
  22. LEXAPRO [Concomitant]
     Route: 048
     Dates: start: 20040224
  23. PAXIL [Concomitant]
     Route: 048
     Dates: start: 19990802
  24. REMERON [Concomitant]
     Dosage: 15 MG TO 30 MG, AT NIGHT
     Route: 048
     Dates: start: 19990802

REACTIONS (13)
  - ARTHRITIS [None]
  - ASTHMA [None]
  - BLOOD CHOLESTEROL INCREASED [None]
  - CARDIAC FAILURE CONGESTIVE [None]
  - CEREBROVASCULAR ACCIDENT [None]
  - DIABETES MELLITUS [None]
  - HYPERLIPIDAEMIA [None]
  - PANCREATITIS [None]
  - SUICIDE ATTEMPT [None]
  - TYPE 1 DIABETES MELLITUS [None]
  - TYPE 2 DIABETES MELLITUS [None]
  - VISUAL ACUITY REDUCED [None]
  - WEIGHT INCREASED [None]
